FAERS Safety Report 8733583 (Version 2)
Quarter: 2012Q4

REPORT INFORMATION
  Report Type: 
  Country: GB (occurrence: GB)
  Receive Date: 20120821
  Receipt Date: 20120904
  Transmission Date: 20130627
  Serious: Yes (Other)
  Sender: FDA-Public Use
  Company Number: GB-PFIZER INC-2012200491

PATIENT
  Age: 39 Year
  Sex: Male
  Weight: 89 kg

DRUGS (6)
  1. ATORVASTATIN [Suspect]
     Dosage: UNK
     Dates: start: 20120518
  2. ZYPREXA [Concomitant]
     Dates: start: 20120420
  3. BISOPROLOL [Concomitant]
     Dates: start: 20120426, end: 20120508
  4. LANSOPRAZOLE [Concomitant]
     Dates: start: 20120518
  5. ASPIRIN [Concomitant]
     Dates: start: 20120518
  6. RAMIPRIL [Concomitant]
     Dates: start: 20120518

REACTIONS (2)
  - Paraesthesia [Recovered/Resolved]
  - Hypoaesthesia [Recovered/Resolved]
